FAERS Safety Report 17454915 (Version 1)
Quarter: 2020Q1

REPORT INFORMATION
  Report Type: Spontaneous
  Country: US (occurrence: US)
  Receive Date: 20200225
  Receipt Date: 20200225
  Transmission Date: 20200409
  Serious: No
  Sender: FDA-Public Use
  Company Number: US-ASTRAZENECA-2019SF69053

PATIENT
  Age: 65 Year
  Sex: Male
  Weight: 117.9 kg

DRUGS (1)
  1. ZOMIG [Suspect]
     Active Substance: ZOLMITRIPTAN
     Indication: MIGRAINE
     Dosage: 1 SPRAY IN 1 NOSTRIL AT ONSET OF MIGRAINE. MAY REPEAT IN 2 HOURS IF NEEDED
     Route: 045
     Dates: end: 20200206

REACTIONS (3)
  - Intentional product misuse [Unknown]
  - Product dose omission [Unknown]
  - Migraine [Unknown]

NARRATIVE: CASE EVENT DATE: 20200206
